FAERS Safety Report 24349351 (Version 1)
Quarter: 2024Q3

REPORT INFORMATION
  Report Type: Spontaneous
  Country: US (occurrence: US)
  Receive Date: 20240923
  Receipt Date: 20240923
  Transmission Date: 20241017
  Serious: No
  Sender: NOBELPHARMA
  Company Number: US-Nobelpharma America, LLC-NPA-2024-01628

PATIENT
  Age: 15 Year
  Sex: Male

DRUGS (1)
  1. HYFTOR [Suspect]
     Active Substance: SIROLIMUS
     Indication: Product used for unknown indication
     Route: 003

REACTIONS (1)
  - Skin burning sensation [Unknown]
